FAERS Safety Report 8419189-2 (Version None)
Quarter: 2012Q2

REPORT INFORMATION
  Report Type: 
  Country: None (occurrence: None)
  Receive Date: 20120530
  Receipt Date: 20120516
  Transmission Date: 20120825
  Serious: Yes (Other)
  Sender: FDA-Public Use
  Company Number: 2012AT000237

PATIENT
  Age: 38 Year
  Sex: Male

DRUGS (4)
  1. THEOPHYLLINE [Suspect]
     Indication: POLYCYTHAEMIA
     Dosage: 300 MG;QD
     Dates: start: 20090601
  2. PREDNISONE [Concomitant]
  3. MYCOPHENOLIC ACID [Concomitant]
  4. TACROLIMUS [Suspect]
     Indication: PROPHYLAXIS AGAINST TRANSPLANT REJECTION
     Dosage: 10 MG;QD
     Dates: start: 20080301

REACTIONS (2)
  - POLYCYTHAEMIA [None]
  - RENAL IMPAIRMENT [None]
